FAERS Safety Report 7655108-4 (Version None)
Quarter: 2011Q3

REPORT INFORMATION
  Report Type: 
  Country: None (occurrence: None)
  Receive Date: 20110804
  Receipt Date: 20110609
  Transmission Date: 20111222
  Serious: Yes (Life-Threatening, Other)
  Sender: FDA-Public Use
  Company Number: GB-JNJFOC-20110105877

PATIENT
  Sex: Female

DRUGS (18)
  1. HUMIRA [Concomitant]
  2. SYMBICORT [Concomitant]
     Dosage: DOSE 2 PUFFS DAILY
     Route: 055
  3. ZOPICLONE [Concomitant]
  4. FLUCONAL [Concomitant]
  5. AZATHIOPRINE SODIUM [Concomitant]
  6. INFLUENZA VACCINE [Concomitant]
  7. OMEPRAZOLE [Concomitant]
  8. IBUPROFEN [Concomitant]
     Dosage: FREQUENCY ^TDS^
  9. REMICADE [Suspect]
     Indication: CROHN'S DISEASE
     Route: 042
  10. AZATHIOPRINE SODIUM [Concomitant]
  11. PREDNISOLONE [Concomitant]
  12. MIRTAZAPINE [Concomitant]
  13. TRAMADOL HCL [Concomitant]
  14. ORAMORPH SR [Concomitant]
  15. CHLORPHENIRAMINE MALEATE [Concomitant]
     Dosage: FREQUENCY ^TDS^
  16. AMOXICILLIN AND CLAVULANATE POTASSIUM [Concomitant]
     Dosage: FREQUENCY ^TDS^
  17. VENTOLIN HFA [Concomitant]
  18. SEREVENT [Concomitant]

REACTIONS (5)
  - ANTINUCLEAR ANTIBODY INCREASED [None]
  - ASTHMA [None]
  - LUPUS-LIKE SYNDROME [None]
  - SKIN LESION [None]
  - ERYTHEMA NODOSUM [None]
